FAERS Safety Report 8523521-9 (Version None)
Quarter: 2012Q3

REPORT INFORMATION
  Report Type: 
  Country: None (occurrence: None)
  Receive Date: 20120720
  Receipt Date: 20120711
  Transmission Date: 20120928
  Serious: Yes (Other)
  Sender: FDA-Public Use
  Company Number: JP-JNJFOC-20120706862

PATIENT
  Age: 68 Year
  Sex: Female

DRUGS (1)
  1. REMICADE [Suspect]
     Indication: RHEUMATOID ARTHRITIS
     Dosage: INFLIXIMAB, RECOMBINANT DURATION OF 14 MONTHS
     Route: 042

REACTIONS (2)
  - INFECTION [None]
  - KNEE ARTHROPLASTY [None]
